FAERS Safety Report 8693491 (Version 4)
Quarter: 2013Q1

REPORT INFORMATION
  Report Type: Report from Study
  Country: DE (occurrence: DE)
  Receive Date: 20120730
  Receipt Date: 20130318
  Transmission Date: 20140127
  Serious: Yes (Hospitalization)
  Sender: FDA-Public Use
  Company Number: DE-ABBOTT-12P-062-0959117-00

PATIENT
  Age: 51 None
  Sex: Male
  Weight: 77 kg

DRUGS (4)
  1. HUMIRA 40 MG/0.8 ML PEN [Suspect]
     Indication: CROHN^S DISEASE
     Route: 058
     Dates: start: 20111011, end: 201208
  2. HUMIRA 40 MG/0.8 ML PEN [Suspect]
     Route: 058
     Dates: start: 201208, end: 201212
  3. PANTOPRAZOL [Concomitant]
     Indication: PRODUCT USED FOR UNKNOWN INDICATION
  4. CORTISONE [Concomitant]
     Indication: CROHN^S DISEASE

REACTIONS (7)
  - Gastric stenosis [Recovering/Resolving]
  - Oesophageal stenosis [Recovering/Resolving]
  - Oesophageal stenosis [Not Recovered/Not Resolved]
  - Oesophageal oedema [Not Recovered/Not Resolved]
  - Hypophagia [Not Recovered/Not Resolved]
  - Respiratory tract infection [Unknown]
  - Drug ineffective [Unknown]
